FAERS Safety Report 16767143 (Version 6)
Quarter: 2021Q1

REPORT INFORMATION
  Report Type: Spontaneous
  Country: US (occurrence: US)
  Receive Date: 20190903
  Receipt Date: 20210126
  Transmission Date: 20210419
  Serious: Yes (Death, Hospitalization, Other)
  Sender: FDA-Public Use
  Company Number: US-PFIZER INC-2018525168

PATIENT
  Age: 82 Year
  Sex: Male
  Weight: 91 kg

DRUGS (1)
  1. IBRANCE [Suspect]
     Active Substance: PALBOCICLIB
     Indication: RETROPERITONEAL CANCER
     Dosage: 125 MG, CYCLIC (21 DAYS AND 7 DAYS OFF)
     Route: 048

REACTIONS (6)
  - Product use in unapproved indication [Unknown]
  - Death [Fatal]
  - Fatigue [Not Recovered/Not Resolved]
  - Cardiac arrest [Unknown]
  - Neoplasm progression [Unknown]
  - Off label use [Unknown]

NARRATIVE: CASE EVENT DATE: 202009
